FAERS Safety Report 5511172-X (Version None)
Quarter: 2007Q4

REPORT INFORMATION
  Report Type: 
  Country: None (occurrence: None)
  Receive Date: 20071109
  Receipt Date: 20071107
  Transmission Date: 20080405
  Serious: Yes (Death)
  Sender: FDA-Public Use
  Company Number: US-ASTRAZENECA-2007UW25855

PATIENT
  Age: 84 Year
  Sex: Male

DRUGS (13)
  1. SYMBICORT [Suspect]
     Dosage: 160/4.5
     Route: 055
     Dates: start: 20070927
  2. SYNTHROID [Concomitant]
  3. NASACORT [Concomitant]
  4. PROVENTIL [Concomitant]
  5. ALLEGRA D 24 HOUR [Concomitant]
  6. VICODIN [Concomitant]
  7. LASIX [Concomitant]
  8. ALBUTEROL [Concomitant]
  9. ATROVENT [Concomitant]
  10. OXYGEN [Concomitant]
  11. CADUET [Concomitant]
  12. LACTULOSE [Concomitant]
  13. PROTONIX [Concomitant]

REACTIONS (1)
  - CARDIO-RESPIRATORY ARREST [None]
